FAERS Safety Report 13518654 (Version 2)
Quarter: 2017Q3

REPORT INFORMATION
  Report Type: Spontaneous
  Country: US (occurrence: US)
  Receive Date: 20170505
  Receipt Date: 20170711
  Transmission Date: 20171127
  Serious: Yes (Death)
  Sender: FDA-Public Use
  Company Number: US-INTERPRAG-PM-OCA2017-00357

PATIENT

DRUGS (14)
  1. LACTAID [Concomitant]
     Active Substance: LACTASE
     Route: 048
  2. LACTOBACILLUS ACIDOPHILUS [Concomitant]
     Active Substance: LACTOBACILLUS ACIDOPHILUS
     Route: 048
  3. EPOGEN [Concomitant]
     Active Substance: ERYTHROPOIETIN
     Dosage: UNK UNK, BID
     Route: 058
  4. PHOSLO [Concomitant]
     Active Substance: CALCIUM ACETATE
     Dosage: 667 MG, UNK
     Route: 048
  5. URSODIOL. [Concomitant]
     Active Substance: URSODIOL
     Dosage: 600 MG, BID
     Route: 048
  6. FOLVITE                            /00024201/ [Concomitant]
     Dosage: 1 MG, QD
     Route: 048
  7. COLACE [Concomitant]
     Active Substance: DOCUSATE SODIUM
     Dosage: 50 MG, BID
     Route: 048
  8. LANOXIN [Concomitant]
     Active Substance: DIGOXIN
     Dosage: 0125 MG, UNK
     Route: 048
  9. PROAMATINE [Concomitant]
     Active Substance: MIDODRINE HYDROCHLORIDE
     Route: 048
  10. NEPHRO-VITE                        /01801401/ [Concomitant]
     Dosage: 0.8 MG, QD
     Route: 048
  11. OCALIVA [Suspect]
     Active Substance: OBETICHOLIC ACID
     Indication: BILIARY CIRRHOSIS PRIMARY
     Dosage: 5 MG, QD
     Route: 048
     Dates: start: 20170131, end: 20170411
  12. VITAMIN E                          /00110501/ [Concomitant]
     Active Substance: TOCOPHEROL
     Dosage: 100 UNK, QD
     Route: 048
  13. PRILOSEC [Concomitant]
     Active Substance: OMEPRAZOLE MAGNESIUM
     Dosage: 20 MG, QD
     Route: 048
  14. IRON SUCROSE [Concomitant]
     Active Substance: IRON SUCROSE
     Route: 042

REACTIONS (2)
  - Hepatic cirrhosis [Fatal]
  - End stage renal disease [Fatal]

NARRATIVE: CASE EVENT DATE: 20170411
